FAERS Safety Report 7318641-0 (Version None)
Quarter: 2011Q1

REPORT INFORMATION
  Report Type: 
  Country: None (occurrence: None)
  Receive Date: 20110223
  Receipt Date: 20110223
  Transmission Date: 20110831
  Serious: Yes (Other)
  Sender: FDA-Public Use
  Company Number: None

PATIENT
  Age: 64 Year
  Sex: Male
  Weight: 72.5755 kg

DRUGS (3)
  1. LORATADINE [Concomitant]
  2. ALLERCLEAR 10MG. PER TABLET KIRKLAND [Suspect]
     Dosage: 10MG. PER TABLET ONCE PO
     Route: 048
     Dates: start: 20110213, end: 20110214
  3. ANTIHISTAMINE [Concomitant]

REACTIONS (1)
  - DISORIENTATION [None]
